FAERS Safety Report 6742574-1 (Version None)
Quarter: 2010Q2

REPORT INFORMATION
  Report Type: 
  Country: None (occurrence: None)
  Receive Date: 20100524
  Receipt Date: 20100420
  Transmission Date: 20101027
  Serious: No
  Sender: FDA-Public Use
  Company Number: ACO_00730_2010

PATIENT
  Sex: Female
  Weight: 63.5036 kg

DRUGS (10)
  1. AMPYRA [Suspect]
     Indication: MULTIPLE SCLEROSIS
     Dosage: 10 MG 1X/12 HOURS ORAL
     Route: 048
     Dates: start: 20100415, end: 20100420
  2. SIMVASTATIN [Concomitant]
  3. LEVOTHYROXINE SODIUM [Concomitant]
  4. VESICARE [Concomitant]
  5. PROZAC [Concomitant]
  6. CLONAZEPAM [Concomitant]
  7. CLINDAMYCIN [Concomitant]
  8. METHENAMINE TAB [Concomitant]
  9. EXFORGE [Concomitant]
  10. MACROBID [Concomitant]

REACTIONS (7)
  - ABDOMINAL PAIN UPPER [None]
  - BLADDER PAIN [None]
  - CONDITION AGGRAVATED [None]
  - CONSTIPATION [None]
  - DEPRESSION [None]
  - FEELING OF DESPAIR [None]
  - HEADACHE [None]
